FAERS Safety Report 6483498-7 (Version None)
Quarter: 2009Q4

REPORT INFORMATION
  Report Type: 
  Country: None (occurrence: None)
  Receive Date: 20091208
  Receipt Date: 20091208
  Transmission Date: 20100525
  Serious: No
  Sender: FDA-Public Use
  Company Number: None

PATIENT
  Age: 49 Year
  Sex: Male
  Weight: 72.5755 kg

DRUGS (1)
  1. METHYLPREDNISOLONE [Suspect]
     Dosage: DECREASING DOSES FROM 6 TO 1

REACTIONS (1)
  - OSTEONECROSIS [None]
